FAERS Safety Report 6575423-5 (Version None)
Quarter: 2010Q1

REPORT INFORMATION
  Report Type: 
  Country: None (occurrence: None)
  Receive Date: 20100209
  Receipt Date: 20100202
  Transmission Date: 20100710
  Serious: Yes (Other)
  Sender: FDA-Public Use
  Company Number: BR-JNJFOC-20100203436

PATIENT
  Age: 52 Year
  Sex: Female

DRUGS (1)
  1. HALDOL [Suspect]
     Indication: SCHIZOPHRENIA
     Route: 065

REACTIONS (7)
  - AMNESIA [None]
  - ASTHENIA [None]
  - BONE PAIN [None]
  - FEELING ABNORMAL [None]
  - MALAISE [None]
  - MIGRAINE [None]
  - NAUSEA [None]
